FAERS Safety Report 24528040 (Version 1)
Quarter: 2024Q4

REPORT INFORMATION
  Report Type: Report from Study
  Country: CZ (occurrence: CZ)
  Receive Date: 20241021
  Receipt Date: 20241021
  Transmission Date: 20250115
  Serious: Yes (Other)
  Sender: BAYER HEALTHCARE PHARMACEUTICALS INC.
  Company Number: CZ-BAYER-2024A146596

PATIENT
  Age: 30 Year
  Sex: Female

DRUGS (3)
  1. MIRENA [Suspect]
     Active Substance: LEVONORGESTREL
     Indication: Intermenstrual bleeding
     Dosage: 20?G/DAY
     Route: 015
     Dates: start: 20231130
  2. MIRENA [Suspect]
     Active Substance: LEVONORGESTREL
     Indication: Contraception
  3. EUTHYROX [Concomitant]
     Active Substance: LEVOTHYROXINE SODIUM
     Dosage: 50 MG
     Route: 048

REACTIONS (6)
  - Intermenstrual bleeding [Recovered/Resolved]
  - Pelvic pain [Recovered/Resolved]
  - Nausea [Recovered/Resolved]
  - Constipation [Recovered/Resolved]
  - Abdominal distension [Recovered/Resolved]
  - Decreased appetite [Recovered/Resolved]
